FAERS Safety Report 9460646 (Version 2)
Quarter: 2013Q3

REPORT INFORMATION
  Report Type: Report from Study
  Country: CA (occurrence: CA)
  Receive Date: 20130815
  Receipt Date: 20130820
  Transmission Date: 20140515
  Serious: Yes (Hospitalization)
  Sender: FDA-Public Use
  Company Number: PHHY2013CA088008

PATIENT
  Age: 77 Year
  Sex: Female

DRUGS (9)
  1. ACLASTA [Suspect]
     Indication: OSTEOPOROSIS
     Dosage: UNK
     Route: 042
     Dates: start: 20120823
  2. ATIVAN [Concomitant]
  3. CALCIUM [Concomitant]
  4. ASA [Concomitant]
  5. PREVACID [Concomitant]
  6. MONOCOR [Concomitant]
  7. LIPITOR [Concomitant]
  8. AMIODARONE [Concomitant]
  9. WELLBUTRIN [Concomitant]

REACTIONS (3)
  - Fall [Recovered/Resolved with Sequelae]
  - Head injury [Recovered/Resolved with Sequelae]
  - Asthenia [Recovered/Resolved with Sequelae]
